FAERS Safety Report 15333446 (Version 3)
Quarter: 2018Q3

REPORT INFORMATION
  Report Type: Other
  Country: US (occurrence: US)
  Receive Date: 20180830
  Receipt Date: 20180926
  Transmission Date: 20181010
  Serious: Yes (Hospitalization, Other)
  Sender: FDA-Public Use
  Company Number: US-ACORDA-ACO_153240_2018

PATIENT
  Sex: Female

DRUGS (10)
  1. TYSABRI [Suspect]
     Active Substance: NATALIZUMAB
     Indication: MULTIPLE SCLEROSIS
     Dosage: UNK
     Route: 065
     Dates: end: 201802
  2. NITROFURANTOIN MACROCRYSTALS [Concomitant]
     Active Substance: NITROFURANTOIN
     Indication: PRODUCT USED FOR UNKNOWN INDICATION
     Dosage: 100 MG, QD
     Route: 048
  3. PHENAZOPYRIDINE. [Concomitant]
     Active Substance: PHENAZOPYRIDINE
     Indication: PRODUCT USED FOR UNKNOWN INDICATION
     Dosage: 200 MG, QID
     Route: 048
  4. OCREVUS [Concomitant]
     Active Substance: OCRELIZUMAB
     Dosage: 30 MG/ML INFUSE (600 MG), EVERY 6 MONTHS
     Route: 042
     Dates: start: 20180717
  5. NYSTATIN. [Concomitant]
     Active Substance: NYSTATIN
     Indication: PRODUCT USED FOR UNKNOWN INDICATION
     Dosage: UNK, QID
     Route: 065
  6. VALIUM [Concomitant]
     Active Substance: DIAZEPAM
     Indication: PRODUCT USED FOR UNKNOWN INDICATION
     Dosage: 10 MG, TID, PRN
     Route: 048
     Dates: start: 20180412
  7. OCREVUS [Concomitant]
     Active Substance: OCRELIZUMAB
     Indication: PRODUCT USED FOR UNKNOWN INDICATION
     Dosage: UNK
     Route: 065
     Dates: start: 201805
  8. MECLIZINE [Concomitant]
     Active Substance: MECLIZINE HYDROCHLORIDE
     Indication: PRODUCT USED FOR UNKNOWN INDICATION
     Dosage: 25 MG, TID, PRN
     Route: 048
     Dates: start: 20170412, end: 20180412
  9. AMPYRA [Suspect]
     Active Substance: DALFAMPRIDINE
     Indication: GAIT DISTURBANCE
     Dosage: 10 MG, BID
     Route: 048
     Dates: start: 20180510, end: 20180717
  10. HYDROCODONE/ACETAMINOPHEN [Concomitant]
     Active Substance: ACETAMINOPHEN\HYDROCODONE
     Indication: PRODUCT USED FOR UNKNOWN INDICATION
     Dosage: 10/325 MG, Q4H, PRN
     Route: 048
     Dates: start: 20180412, end: 20180416

REACTIONS (18)
  - Urinary tract infection [Unknown]
  - Lung infiltration [Unknown]
  - Dysphagia [Unknown]
  - Headache [Unknown]
  - Sepsis [Unknown]
  - Dysarthria [Unknown]
  - Dyspnoea [Unknown]
  - Gait disturbance [Unknown]
  - Dizziness [Unknown]
  - Blood chloride increased [Unknown]
  - Diplopia [Unknown]
  - Dysstasia [Unknown]
  - Asthenia [Unknown]
  - Urinary incontinence [Unknown]
  - Rash [Unknown]
  - Muscle spasticity [Unknown]
  - Blood sodium increased [Unknown]
  - Ataxia [Unknown]
